FAERS Safety Report 20996530 (Version 5)
Quarter: 2023Q4

REPORT INFORMATION
  Report Type: Report from Study
  Country: US (occurrence: US)
  Receive Date: 20220623
  Receipt Date: 20231103
  Transmission Date: 20240110
  Serious: Yes (Life-Threatening, Hospitalization)
  Sender: FDA-Public Use
  Company Number: US-ARGENX-2022-ARGX-US001026

PATIENT
  Sex: Female
  Weight: 102 kg

DRUGS (2)
  1. VYVGART [Suspect]
     Active Substance: EFGARTIGIMOD ALFA-FCAB
     Indication: Myasthenia gravis
     Dosage: 940 MG
     Dates: start: 20220328
  2. VYVGART [Suspect]
     Active Substance: EFGARTIGIMOD ALFA-FCAB
     Dosage: 10 MG/KG
     Route: 042

REACTIONS (12)
  - Myasthenia gravis [Unknown]
  - Postural orthostatic tachycardia syndrome [Unknown]
  - Dehydration [Unknown]
  - Therapy interrupted [Unknown]
  - Product dose omission issue [Unknown]
  - Insurance issue [Unknown]
  - Fall [Unknown]
  - Back injury [Unknown]
  - Road traffic accident [Unknown]
  - Gastrointestinal bacterial overgrowth [Unknown]
  - Urticaria [Recovered/Resolved]
  - COVID-19 [Unknown]

NARRATIVE: CASE EVENT DATE: 20230101
